FAERS Safety Report 9677145 (Version 2)
Quarter: 2014Q1

REPORT INFORMATION
  Report Type: Spontaneous
  Country: US (occurrence: US)
  Receive Date: 20131108
  Receipt Date: 20140101
  Transmission Date: 20141002
  Serious: Yes (Death, Hospitalization)
  Sender: FDA-Public Use
  Company Number: US-AMGEN-USASP2013077698

PATIENT
  Age: 90 Year
  Sex: Female
  Weight: 54.79 kg

DRUGS (8)
  1. PROLIA [Suspect]
     Indication: OSTEOPOROSIS
     Dosage: 60 MG, Q6MO
     Route: 058
     Dates: start: 20110624
  2. SYNTHROID [Concomitant]
     Indication: HYPOTHYROIDISM
     Dosage: 25 MUG, QD
     Route: 048
     Dates: start: 20100324, end: 20130619
  3. SPIRIVA [Concomitant]
     Indication: CHRONIC OBSTRUCTIVE PULMONARY DISEASE
     Dosage: 18 MUG, QD
     Route: 045
     Dates: start: 20100324, end: 20130619
  4. SYMBICORT [Concomitant]
     Indication: CHRONIC OBSTRUCTIVE PULMONARY DISEASE
     Dosage: UNK UNK, BID
     Route: 045
     Dates: start: 20100324, end: 20130619
  5. NEXIUM                             /01479302/ [Concomitant]
     Indication: GASTROOESOPHAGEAL REFLUX DISEASE
     Dosage: 40 MG, QD
     Route: 048
     Dates: start: 20100324, end: 20130619
  6. SKELAXIN                           /00611501/ [Concomitant]
     Indication: INTERVERTEBRAL DISC DEGENERATION
     Dosage: 800 MG, QID
     Route: 048
     Dates: start: 20100324, end: 20130619
  7. TYLENOL                            /00020001/ [Concomitant]
     Indication: INTERVERTEBRAL DISC DEGENERATION
     Dosage: UNK UNK, AS NECESSARY
     Route: 048
     Dates: start: 20100324, end: 20130619
  8. FOLIC ACID [Concomitant]
     Indication: ANAEMIA
     Dosage: 1 MG, QD
     Route: 048
     Dates: start: 20100324, end: 20130619

REACTIONS (2)
  - Acute myocardial infarction [Fatal]
  - Arrhythmia [Fatal]
